FAERS Safety Report 11956751 (Version 3)
Quarter: 2016Q1

REPORT INFORMATION
  Report Type: Spontaneous
  Country: US (occurrence: US)
  Receive Date: 20160126
  Receipt Date: 20160307
  Transmission Date: 20160526
  Serious: No
  Sender: FDA-Public Use
  Company Number: US-G+W LABORATORIES-1046931

PATIENT
  Sex: Male

DRUGS (1)
  1. CICLOPIROX OLAMINE. [Suspect]
     Active Substance: CICLOPIROX OLAMINE
     Indication: PRODUCT USED FOR UNKNOWN INDICATION
     Route: 003

REACTIONS (2)
  - Dermal absorption impaired [Unknown]
  - Medication residue present [Unknown]
